FAERS Safety Report 5858061-9 (Version None)
Quarter: 2008Q3

REPORT INFORMATION
  Report Type: 
  Country: None (occurrence: None)
  Receive Date: 20080826
  Receipt Date: 20080818
  Transmission Date: 20090109
  Serious: Yes (Other)
  Sender: FDA-Public Use
  Company Number: US-MERCK-0808USA03061M

PATIENT
  Sex: Female

DRUGS (2)
  1. JANUMET [Suspect]
     Route: 048
     Dates: start: 20071001, end: 20080524
  2. VITAMINS (UNSPECIFIED) [Concomitant]
     Indication: PRENATAL CARE
     Route: 065

REACTIONS (3)
  - ABORTION INDUCED [None]
  - DRUG EXPOSURE DURING PREGNANCY [None]
  - INAPPROPRIATE SCHEDULE OF DRUG ADMINISTRATION [None]
